FAERS Safety Report 9205989 (Version 1)
Quarter: 2013Q1

REPORT INFORMATION
  Report Type: Spontaneous
  Country: US (occurrence: None)
  Receive Date: 20120709
  Receipt Date: 20120709
  Transmission Date: 20140127
  Serious: Yes (Hospitalization, Other)
  Sender: FDA-Public Use
  Company Number: PHHY2011US42362

PATIENT
  Age: 51 Year
  Sex: Female
  Weight: 81.9 kg

DRUGS (17)
  1. GLEEVEC (IMATINIB) UNKNOWN [Suspect]
     Indication: ACUTE LYMPHOCYTIC LEUKAEMIA
     Route: 048
     Dates: start: 20110510
  2. ALLOPURINOL [Concomitant]
  3. REMERON [Concomitant]
  4. PERCOCET [Concomitant]
  5. B12 [Concomitant]
  6. CELEXA [Concomitant]
  7. METOPROLOL [Concomitant]
  8. SENNA [Concomitant]
  9. ROBAXIN [Concomitant]
  10. DILAUDID [Concomitant]
  11. FOLIC ACID [Concomitant]
  12. MS CONTIN [Concomitant]
  13. MIRALAX [Concomitant]
  14. ACYCLOVIR [Concomitant]
  15. FLUCONAZOLE [Concomitant]
  16. LEVAQUIN [Concomitant]
  17. ZOFRAN [Concomitant]

REACTIONS (12)
  - Streptococcal bacteraemia [None]
  - Pancytopenia [None]
  - Febrile neutropenia [None]
  - Epistaxis [None]
  - Diarrhoea [None]
  - Fatigue [None]
  - Nausea [None]
  - Cough [None]
  - Tachycardia [None]
  - Pain in extremity [None]
  - Oedema peripheral [None]
  - Pyrexia [None]
